FAERS Safety Report 7532084 (Version 2)
Quarter: 2017Q3

REPORT INFORMATION
  Report Type: Spontaneous
  Country: US (occurrence: US)
  Receive Date: 20100806
  Receipt Date: 20170809
  Transmission Date: 20171128
  Serious: No
  Sender: FDA-Public Use
  Company Number: US-PFIZER INC-2008048405

PATIENT
  Age: 66 Year
  Sex: Female
  Weight: 58.6 kg

DRUGS (4)
  1. KLONOPIN [Concomitant]
     Active Substance: CLONAZEPAM
     Indication: ANXIETY
  2. AMOXICILLIN. [Concomitant]
     Active Substance: AMOXICILLIN
  3. CYTOTEC [Suspect]
     Active Substance: MISOPROSTOL
     Indication: SMEAR CERVIX
     Dosage: 800 UG, UNK
     Route: 067
     Dates: start: 200805, end: 200805
  4. CYTOTEC [Suspect]
     Active Substance: MISOPROSTOL
     Indication: OFF LABEL USE

REACTIONS (6)
  - Feeling cold [Recovered/Resolved]
  - Hyperventilation [Recovered/Resolved]
  - Anxiety [Recovered/Resolved]
  - Product use in unapproved indication [Recovered/Resolved]
  - Tremor [Recovered/Resolved]
  - Nervousness [Recovered/Resolved]

NARRATIVE: CASE EVENT DATE: 200805
